FAERS Safety Report 10442120 (Version 1)
Quarter: 2014Q3

REPORT INFORMATION
  Report Type: Spontaneous
  Country: US (occurrence: US)
  Receive Date: 20140909
  Receipt Date: 20140909
  Transmission Date: 20150326
  Serious: Yes (Other)
  Sender: FDA-Public Use
  Company Number: US-ABBVIE-14P-163-1280354-00

PATIENT
  Sex: Female
  Weight: 43.13 kg

DRUGS (1)
  1. SYNTHROID [Suspect]
     Active Substance: LEVOTHYROXINE SODIUM
     Indication: HYPOTHYROIDISM
     Dosage: UNKNOWN DOSE

REACTIONS (4)
  - Thyroid cancer [Unknown]
  - Fatigue [Unknown]
  - Drug ineffective [Unknown]
  - Hyperhidrosis [Unknown]
